FAERS Safety Report 13054435 (Version 1)
Quarter: 2016Q4

REPORT INFORMATION
  Report Type: Spontaneous
  Country: US (occurrence: US)
  Receive Date: 20161222
  Receipt Date: 20161222
  Transmission Date: 20170207
  Serious: Yes (Other)
  Sender: FDA-Public Use
  Company Number: None

PATIENT
  Age: 58 Year
  Sex: Female
  Weight: 53.06 kg

DRUGS (6)
  1. MULTI VIT [Concomitant]
  2. SYNTHROID [Concomitant]
     Active Substance: LEVOTHYROXINE SODIUM
  3. TRESIBA [Suspect]
     Active Substance: INSULIN DEGLUDEC
     Indication: TYPE 1 DIABETES MELLITUS
     Route: 058
     Dates: start: 20161204, end: 20161222
  4. LISINOPRIL. [Concomitant]
     Active Substance: LISINOPRIL
  5. HUMALOG [Concomitant]
     Active Substance: INSULIN LISPRO
  6. SYMLIN [Concomitant]
     Active Substance: PRAMLINTIDE ACETATE

REACTIONS (9)
  - Movement disorder [None]
  - Headache [None]
  - Decreased activity [None]
  - Nausea [None]
  - Vomiting [None]
  - Quality of life decreased [None]
  - Migraine [None]
  - Decreased appetite [None]
  - Weight increased [None]

NARRATIVE: CASE EVENT DATE: 20161221
